FAERS Safety Report 4982654-4 (Version None)
Quarter: 2006Q2

REPORT INFORMATION
  Report Type: 
  Country: None (occurrence: None)
  Receive Date: 20060420
  Receipt Date: 20060407
  Transmission Date: 20061013
  Serious: Yes (Death, Hospitalization)
  Sender: FDA-Public Use
  Company Number: 145293USA

PATIENT
  Age: 71 Year
  Sex: Female

DRUGS (14)
  1. MERCAPTOPURINE [Suspect]
     Indication: CROHN'S DISEASE
  2. REMICADE [Suspect]
     Indication: CROHN'S DISEASE
  3. MESALAZINE [Concomitant]
  4. PANTOPRAZOLE [Concomitant]
  5. LOSARTAN POTASSIUM [Concomitant]
  6. HYDROCHLOROTHIAZIDE [Concomitant]
  7. VANCOMYCIN [Concomitant]
  8. DEXAMETHASONE [Concomitant]
  9. ONDANSETRON [Concomitant]
  10. INSULIN [Concomitant]
  11. LOPERAMIDE [Concomitant]
  12. ZOLPIDEM TARTRATE [Concomitant]
  13. CEFOXITIN [Concomitant]
  14. CYANOCOLBALAMIN [Concomitant]

REACTIONS (18)
  - ABDOMINAL MASS [None]
  - ANGER [None]
  - BODY TEMPERATURE INCREASED [None]
  - BRAIN MASS [None]
  - COORDINATION ABNORMAL [None]
  - DEPRESSED LEVEL OF CONSCIOUSNESS [None]
  - DEPRESSION [None]
  - FACIAL PALSY [None]
  - FATIGUE [None]
  - GAIT DISTURBANCE [None]
  - GRAND MAL CONVULSION [None]
  - GRANULOMA [None]
  - HEADACHE [None]
  - INGUINAL MASS [None]
  - MYOCARDIAL INFARCTION [None]
  - NEOPLASM PROGRESSION [None]
  - NON-HODGKIN'S LYMPHOMA [None]
  - VISION BLURRED [None]
